FAERS Safety Report 9292385 (Version 4)
Quarter: 2015Q4

REPORT INFORMATION
  Report Type: Spontaneous
  Country: US (occurrence: US)
  Receive Date: 20130516
  Receipt Date: 20151221
  Transmission Date: 20160305
  Serious: Yes (Hospitalization, Other)
  Sender: FDA-Public Use
  Company Number: US-BAYER-2013-060530

PATIENT
  Age: 26 Year
  Sex: Female
  Weight: 61.22 kg

DRUGS (4)
  1. ALEVE [Concomitant]
     Active Substance: NAPROXEN SODIUM
     Dosage: ON RARE OCCASION
  2. YAZ [Suspect]
     Active Substance: DROSPIRENONE\ETHINYL ESTRADIOL
     Indication: ACNE
     Dosage: UNK
     Dates: start: 2002, end: 2013
  3. VITAMIN C [ASCORBIC ACID] [Concomitant]
  4. YASMIN [Suspect]
     Active Substance: DROSPIRENONE\ETHINYL ESTRADIOL
     Indication: ACNE
     Dosage: UNK
     Dates: start: 2002, end: 2013

REACTIONS (12)
  - Muscle spasms [None]
  - Injury [None]
  - Pain in extremity [None]
  - Swelling [None]
  - Skin discolouration [None]
  - Deep vein thrombosis [None]
  - General physical health deterioration [None]
  - Headache [None]
  - Pain [None]
  - Cerebrovascular accident [None]
  - Erythema [None]
  - Dizziness [None]

NARRATIVE: CASE EVENT DATE: 201302
